FAERS Safety Report 17367006 (Version 2)
Quarter: 2020Q1

REPORT INFORMATION
  Report Type: Spontaneous
  Country: JP (occurrence: JP)
  Receive Date: 20200204
  Receipt Date: 20200310
  Transmission Date: 20200409
  Serious: Yes (Hospitalization, Other)
  Sender: FDA-Public Use
  Company Number: JP-ELI_LILLY_AND_COMPANY-JP202001011728

PATIENT
  Age: 73 Year
  Sex: Female
  Weight: 38 kg

DRUGS (9)
  1. NEXIUM [Concomitant]
     Active Substance: ESOMEPRAZOLE MAGNESIUM
     Indication: GASTRITIS PROPHYLAXIS
     Dosage: 10 MG
     Route: 048
     Dates: start: 20170213
  2. HEPARIN [Concomitant]
     Active Substance: HEPARIN SODIUM
  3. CYRAMZA [Suspect]
     Active Substance: RAMUCIRUMAB
     Indication: NON-SMALL CELL LUNG CANCER
     Dosage: 350 MG, CYCLICAL
     Route: 041
     Dates: start: 20180306, end: 20180418
  4. TAXOTERE [Suspect]
     Active Substance: DOCETAXEL
     Indication: NON-SMALL CELL LUNG CANCER
     Dosage: 70 MG, CYCLICAL
     Route: 041
     Dates: start: 20180306, end: 20180418
  5. MS CONTIN [Concomitant]
     Active Substance: MORPHINE SULFATE
     Indication: CANCER PAIN
     Dosage: 40 MG
     Route: 048
     Dates: start: 20170213
  6. SYMPROIC [Concomitant]
     Active Substance: NALDEMEDINE
     Indication: CONSTIPATION PROPHYLAXIS
     Dosage: 0.2 MG
     Route: 048
     Dates: start: 20170213
  7. AMBROXOL HYDROCHLORIDE [Concomitant]
     Active Substance: AMBROXOL HYDROCHLORIDE
     Indication: SPUTUM RETENTION
     Dosage: 45 MG
     Route: 048
     Dates: start: 20170213
  8. NAIXAN [NAPROXEN] [Concomitant]
     Active Substance: NAPROXEN
     Indication: CANCER PAIN
     Dosage: 300 MG
     Route: 048
     Dates: start: 20170213
  9. RESTAMIN [DIPHENHYDRAMINE HYDROCHLORIDE] [Concomitant]
     Dosage: 50 MG
     Route: 048
     Dates: start: 20180316, end: 20180418

REACTIONS (2)
  - Pulmonary haemorrhage [Recovering/Resolving]
  - Tumour cavitation [Recovering/Resolving]

NARRATIVE: CASE EVENT DATE: 20180418
